FAERS Safety Report 12161301 (Version 2)
Quarter: 2016Q1

REPORT INFORMATION
  Report Type: Spontaneous
  Country: US (occurrence: US)
  Receive Date: 20160308
  Receipt Date: 20160322
  Transmission Date: 20160526
  Serious: Yes (Other)
  Sender: FDA-Public Use
  Company Number: US-JAZZ-JPI-P-022549

PATIENT
  Age: 47 Year
  Sex: Female
  Weight: 87.75 kg

DRUGS (6)
  1. XYREM [Suspect]
     Active Substance: SODIUM OXYBATE
     Indication: NARCOLEPSY
     Dosage: 2.25 G, BID
     Route: 048
     Dates: start: 201008
  2. XYREM [Suspect]
     Active Substance: SODIUM OXYBATE
     Indication: CATAPLEXY
     Dosage: 4.5 G, BID
     Route: 048
  3. PRAVACHOL [Concomitant]
     Active Substance: PRAVASTATIN SODIUM
     Indication: BLOOD CHOLESTEROL INCREASED
     Dosage: UNK
  4. XYREM [Suspect]
     Active Substance: SODIUM OXYBATE
     Dosage: 4 G, BID
     Route: 048
  5. MONOPRIL [Concomitant]
     Active Substance: FOSINOPRIL SODIUM
     Indication: NARCOLEPSY
     Dosage: UNK
  6. XYREM [Suspect]
     Active Substance: SODIUM OXYBATE
     Dosage: 4.5 G, BID
     Route: 048
     Dates: start: 201402

REACTIONS (2)
  - Abdominal pain [Not Recovered/Not Resolved]
  - Gallbladder operation [Recovered/Resolved]

NARRATIVE: CASE EVENT DATE: 201008
